FAERS Safety Report 9790656 (Version 1)
Quarter: 2013Q4

REPORT INFORMATION
  Report Type: Spontaneous
  Country: US (occurrence: US)
  Receive Date: 20131231
  Receipt Date: 20131231
  Transmission Date: 20140711
  Serious: No
  Sender: FDA-Public Use
  Company Number: US-PFIZER INC-2013373263

PATIENT
  Age: 41 Year
  Sex: Female

DRUGS (10)
  1. DAYPRO [Suspect]
     Dosage: UNK
  2. TYLENOL [Suspect]
     Dosage: UNK
  3. AMITRIPTYLINE [Suspect]
     Dosage: UNK
  4. ZYBAN [Suspect]
     Dosage: UNK
  5. BUSPAR [Suspect]
     Dosage: UNK
  6. CODEINE [Suspect]
     Dosage: UNK
  7. FLEXERIL [Suspect]
     Dosage: UNK
  8. VOLTAREN [Suspect]
     Dosage: UNK
  9. ULTRAM [Suspect]
     Dosage: UNK
  10. TRAZODONE [Suspect]
     Dosage: UNK

REACTIONS (1)
  - Drug hypersensitivity [Unknown]
